FAERS Safety Report 10325659 (Version 2)
Quarter: 2015Q1

REPORT INFORMATION
  Report Type: Other
  Country: US (occurrence: US)
  Receive Date: 20140720
  Receipt Date: 20150323
  Transmission Date: 20150720
  Serious: Yes (Hospitalization, Other)
  Sender: FDA-Public Use
  Company Number: US-GSKPPD-2014GSK028692

PATIENT
  Age: 74 Year
  Sex: Male

DRUGS (7)
  1. AVANDIA [Suspect]
     Active Substance: ROSIGLITAZONE MALEATE
     Indication: DIABETES MELLITUS
     Route: 048
     Dates: end: 200710
  2. LASIX [Concomitant]
     Active Substance: FUROSEMIDE
  3. ACCUPRIL [Concomitant]
     Active Substance: QUINAPRIL HYDROCHLORIDE
  4. COUMADIN [Concomitant]
     Active Substance: WARFARIN SODIUM
  5. CARDIZEM CD [Concomitant]
     Active Substance: DILTIAZEM HYDROCHLORIDE
  6. ASPIRIN. [Concomitant]
     Active Substance: ASPIRIN
  7. IMDUR [Concomitant]
     Active Substance: ISOSORBIDE MONONITRATE

REACTIONS (1)
  - Cardiac failure congestive [Unknown]

NARRATIVE: CASE EVENT DATE: 20071020
